FAERS Safety Report 17849373 (Version 1)
Quarter: 2020Q2

REPORT INFORMATION
  Report Type: Spontaneous
  Country: US (occurrence: US)
  Receive Date: 20200601
  Receipt Date: 20200601
  Transmission Date: 20200714
  Serious: Yes (Other)
  Sender: FDA-Public Use
  Company Number: None

PATIENT
  Age: 60 Year
  Sex: Male
  Weight: 99 kg

DRUGS (17)
  1. REMDESIVIR. [Suspect]
     Active Substance: REMDESIVIR
     Route: 040
     Dates: start: 20200529, end: 20200531
  2. BENGAY CREAM PRN [Concomitant]
     Dates: start: 20200524
  3. ROBITUSSIN DM PRN [Concomitant]
     Dates: start: 20200524
  4. MELATONIN PRN INSOMNIA [Concomitant]
     Dates: start: 20200524
  5. METHOCARBAMOL 750MG PO BID PRN [Concomitant]
     Dates: start: 20200524
  6. ZOFRAN PO/IV PRN [Concomitant]
     Dates: start: 20200524
  7. MIRALAX DAILY PRN [Concomitant]
     Dates: start: 20200524
  8. CHLORHEXIDINE PO BID [Concomitant]
     Dates: start: 20200528
  9. PANTOPRAZOLE [Concomitant]
     Active Substance: PANTOPRAZOLE
     Dates: start: 20200528
  10. REMDESIVIR. [Suspect]
     Active Substance: REMDESIVIR
     Indication: COVID-19
     Dosage: ?          OTHER FREQUENCY:ONCE;?
     Route: 040
     Dates: start: 20200528, end: 20200528
  11. ACETAMINOPHEN PRN [Concomitant]
     Dates: start: 20200524
  12. BACTROBAN OINT NASAL BID [Concomitant]
     Dates: start: 20200528
  13. BISACODYL SUPP PRN [Concomitant]
     Dates: start: 20200524
  14. MENTHOL LOZENGE PRN [Concomitant]
     Dates: start: 20200524
  15. HEPARIN 7.500 U SUBQ TID [Concomitant]
     Dates: start: 20200528
  16. SOLU-MEDROL 40MG IV BID [Concomitant]
     Dates: start: 20200528
  17. NS IV SOLUTION [Concomitant]
     Dates: start: 20200524

REACTIONS (2)
  - Therapy cessation [None]
  - Alanine aminotransferase increased [None]

NARRATIVE: CASE EVENT DATE: 20200601
